FAERS Safety Report 25136520 (Version 1)
Quarter: 2025Q1

REPORT INFORMATION
  Report Type: Spontaneous
  Country: CA (occurrence: CA)
  Receive Date: 20250328
  Receipt Date: 20250328
  Transmission Date: 20250409
  Serious: Yes (Other)
  Sender: PFIZER
  Company Number: CA-PFIZER INC-PV202500037423

PATIENT
  Age: 57 Year
  Sex: Female

DRUGS (10)
  1. METHOTREXATE SODIUM [Suspect]
     Active Substance: METHOTREXATE SODIUM
     Indication: Uveitis
     Dates: start: 202410
  2. FOLIC ACID [Concomitant]
     Active Substance: FOLIC ACID
  3. MAXIDEX [Concomitant]
     Active Substance: DEXAMETHASONE
  4. ACETAZOLAMIDE [Concomitant]
     Active Substance: ACETAZOLAMIDE
  5. AZARGA [Concomitant]
     Active Substance: BRINZOLAMIDE\TIMOLOL MALEATE
  6. NEVANAC [Concomitant]
     Active Substance: NEPAFENAC
  7. AZOPT [Concomitant]
     Active Substance: BRINZOLAMIDE
  8. CYCLOPENTOLATE [Concomitant]
     Active Substance: CYCLOPENTOLATE
  9. VYZULTA [Concomitant]
     Active Substance: LATANOPROSTENE BUNOD
  10. VITAMIN D NOS [Concomitant]
     Active Substance: CHOLECALCIFEROL\ERGOCALCIFEROL

REACTIONS (2)
  - Ocular discomfort [Not Recovered/Not Resolved]
  - Off label use [Unknown]

NARRATIVE: CASE EVENT DATE: 20241001
